FAERS Safety Report 15154094 (Version 3)
Quarter: 2019Q3

REPORT INFORMATION
  Report Type: Spontaneous
  Country: CA (occurrence: CA)
  Receive Date: 20180717
  Receipt Date: 20190805
  Transmission Date: 20191004
  Serious: Yes (Death, Other)
  Sender: FDA-Public Use
  Company Number: CA-PFIZER INC-2018283851

PATIENT
  Age: 24 Year
  Sex: Female
  Weight: 37 kg

DRUGS (28)
  1. AMITRIPTYLINE [Concomitant]
     Active Substance: AMITRIPTYLINE
     Dosage: UNK
  2. CREON [Concomitant]
     Active Substance: PANCRELIPASE AMYLASE\PANCRELIPASE LIPASE\PANCRELIPASE PROTEASE
     Dosage: UNK
  3. MEROPENEM. [Suspect]
     Active Substance: MEROPENEM
     Dosage: 2 G, 3X/DAY
     Route: 065
     Dates: start: 20180614
  4. DORNASE [Concomitant]
     Active Substance: STREPTODORNASE\STREPTOKINASE
     Dosage: UNK
  5. FENTANYL. [Concomitant]
     Active Substance: FENTANYL
     Dosage: UNK
  6. HYDROMORPHONE [Concomitant]
     Active Substance: HYDROMORPHONE
     Dosage: UNK
  7. PEG [Concomitant]
     Active Substance: POLYETHYLENE GLYCOLS
     Dosage: UNK
  8. SCOPOLAMINE PCH [Concomitant]
     Dosage: UNK
  9. LORAZEPAM. [Concomitant]
     Active Substance: LORAZEPAM
     Dosage: UNK
  10. SALBUTAMOL [Concomitant]
     Active Substance: ALBUTEROL
     Dosage: UNK
  11. CALCIUM CARBONATE. [Concomitant]
     Active Substance: CALCIUM CARBONATE
     Dosage: UNK
  12. AVIBACTAM SODIUM/CEFTAZIDIME PENTAHYDRATE [Suspect]
     Active Substance: AVIBACTAM SODIUM\CEFTAZIDIME
     Indication: BURKHOLDERIA CEPACIA COMPLEX INFECTION
     Dosage: 2.5 G, 3X/DAY (Q8HR)
     Route: 042
     Dates: start: 20180420
  13. ACETAMINOPHEN. [Concomitant]
     Active Substance: ACETAMINOPHEN
     Dosage: UNK
  14. PANTOPRAZOLE [Concomitant]
     Active Substance: PANTOPRAZOLE
     Dosage: UNK
  15. MIRTAZAPINE. [Concomitant]
     Active Substance: MIRTAZAPINE
     Dosage: UNK
  16. MEROPENEM. [Suspect]
     Active Substance: MEROPENEM
     Indication: BURKHOLDERIA CEPACIA COMPLEX INFECTION
     Dosage: 2 G, 3X/DAY (Q8HR)
     Route: 042
     Dates: start: 20180406, end: 20180603
  17. DOMPERIDONE [Concomitant]
     Active Substance: DOMPERIDONE
     Dosage: UNK
  18. DOCUSATE SODIUM. [Concomitant]
     Active Substance: DOCUSATE SODIUM
     Dosage: UNK
  19. ZOPICLONE [Concomitant]
     Active Substance: ZOPICLONE
     Dosage: UNK
  20. BETAMETHASONE. [Concomitant]
     Active Substance: BETAMETHASONE
     Dosage: UNK
  21. AZTREONAM. [Suspect]
     Active Substance: AZTREONAM
     Indication: BURKHOLDERIA CEPACIA COMPLEX INFECTION
     Dosage: 75 MG, 3X/DAY
     Route: 055
     Dates: start: 20180415
  22. POLYETHYLENE GLYCOL [Concomitant]
     Active Substance: POLYETHYLENE GLYCOLS
     Dosage: UNK
  23. ZOLEDRONIC ACID [Concomitant]
     Active Substance: ZOLEDRONIC ACID
     Dosage: UNK
  24. VITAMIN D [Concomitant]
     Active Substance: VITAMIN D NOS
     Dosage: UNK
  25. SALMETEROL/FLUTICASONPROPIONAAT [Concomitant]
     Active Substance: FLUTICASONE PROPIONATE\SALMETEROL XINAFOATE
     Dosage: UNK
  26. METOCLOPRAMIDE. [Concomitant]
     Active Substance: METOCLOPRAMIDE
     Dosage: UNK
  27. ONDANSETRON [Concomitant]
     Active Substance: ONDANSETRON
     Dosage: UNK
  28. DIMENHYDRINATE. [Concomitant]
     Active Substance: DIMENHYDRINATE
     Dosage: UNK

REACTIONS (11)
  - Blood alkaline phosphatase increased [Unknown]
  - Respiratory failure [Fatal]
  - Gastrointestinal disorder [Unknown]
  - Malnutrition [Unknown]
  - Weight abnormal [Unknown]
  - Blood bilirubin decreased [Unknown]
  - Off label use [Unknown]
  - Drug ineffective [Unknown]
  - Aspartate aminotransferase increased [Unknown]
  - Alanine aminotransferase increased [Unknown]
  - Product use in unapproved indication [Unknown]

NARRATIVE: CASE EVENT DATE: 2018
